FAERS Safety Report 13080575 (Version 1)
Quarter: 2017Q1

REPORT INFORMATION
  Report Type: Spontaneous
  Country: DK (occurrence: DK)
  Receive Date: 20170103
  Receipt Date: 20170103
  Transmission Date: 20170428
  Serious: Yes (Hospitalization)
  Sender: FDA-Public Use
  Company Number: DK-B. BRAUN MEDICAL INC.-1061451

PATIENT
  Sex: Female

DRUGS (7)
  1. ENOXAPARIN SODIUM. [Suspect]
     Active Substance: ENOXAPARIN SODIUM
     Dates: end: 20151224
  2. METRONIDAZOLE. [Suspect]
     Active Substance: METRONIDAZOLE
     Dates: end: 20151224
  3. SOLU-CORTEF [Suspect]
     Active Substance: HYDROCORTISONE SODIUM SUCCINATE
     Dates: end: 20151224
  4. VEDOLIZUMAB [Suspect]
     Active Substance: VEDOLIZUMAB
     Route: 042
     Dates: start: 20150827
  5. CEFUROXIME FOR INJECTION USP AND DEXTROSE INJECTION USP [Suspect]
     Active Substance: CEFUROXIME SODIUM
     Dates: end: 20151224
  6. ZOLEDRONIC ACID [Concomitant]
     Active Substance: ZOLEDRONIC ACID
  7. BUDESONIDE INHALATION [Concomitant]
     Active Substance: BUDESONIDE
     Route: 055

REACTIONS (1)
  - Colitis ulcerative [Recovered/Resolved]
